FAERS Safety Report 22031529 (Version 1)
Quarter: 2023Q1

REPORT INFORMATION
  Report Type: Spontaneous
  Country: AR (occurrence: AR)
  Receive Date: 20230224
  Receipt Date: 20230224
  Transmission Date: 20230418
  Serious: Yes (Other)
  Sender: FDA-Public Use
  Company Number: AR-ALKEM LABORATORIES LIMITED-AR-ALKEM-2022-04880

PATIENT
  Age: 23 Year
  Sex: Male

DRUGS (2)
  1. FINASTERIDE [Suspect]
     Active Substance: FINASTERIDE
     Indication: Androgenetic alopecia
     Dosage: 1 MILLIGRAM, QD
     Route: 065
  2. TADALAFIL [Suspect]
     Active Substance: TADALAFIL
     Indication: Erectile dysfunction
     Dosage: 5 MILLIGRAM, QD
     Route: 065

REACTIONS (9)
  - Erectile dysfunction [Recovered/Resolved]
  - Libido decreased [Recovered/Resolved]
  - Hypospermia [Recovered/Resolved]
  - Orgasm abnormal [Recovered/Resolved]
  - Asthenia [Recovered/Resolved]
  - Myalgia [Recovered/Resolved]
  - Penile size reduced [Recovered/Resolved]
  - Headache [Recovered/Resolved]
  - Tinnitus [Recovered/Resolved]
